FAERS Safety Report 10202389 (Version 1)
Quarter: 2014Q2

REPORT INFORMATION
  Report Type: Spontaneous
  Country: US (occurrence: US)
  Receive Date: 20140528
  Receipt Date: 20140528
  Transmission Date: 20141212
  Serious: No
  Sender: FDA-Public Use
  Company Number: US-009507513-1405USA007123

PATIENT
  Sex: Male

DRUGS (1)
  1. MIRALAX [Suspect]
     Indication: PRODUCT USED FOR UNKNOWN INDICATION
     Dosage: UNK, QD
     Route: 048

REACTIONS (3)
  - Incorrect drug administration duration [Unknown]
  - Drug prescribing error [Unknown]
  - Product packaging quantity issue [Unknown]
